FAERS Safety Report 5404139-3 (Version None)
Quarter: 2007Q3

REPORT INFORMATION
  Report Type: 
  Country: None (occurrence: None)
  Receive Date: 20070731
  Receipt Date: 20070720
  Transmission Date: 20080115
  Serious: Yes (Hospitalization)
  Sender: FDA-Public Use
  Company Number: 2007SP002600

PATIENT
  Sex: Female

DRUGS (2)
  1. XOPENEX [Suspect]
     Indication: CHRONIC OBSTRUCTIVE PULMONARY DISEASE
     Dosage: 1.25 MG/3 ML; PRN; INHALATION
     Route: 055
     Dates: start: 20030101
  2. OXYGEN [Concomitant]

REACTIONS (1)
  - PULMONARY FIBROSIS [None]
